FAERS Safety Report 9986813 (Version 1)
Quarter: 2014Q1

REPORT INFORMATION
  Report Type: Spontaneous
  Country: US (occurrence: US)
  Receive Date: 20140307
  Receipt Date: 20140307
  Transmission Date: 20141002
  Serious: Yes (Hospitalization)
  Sender: FDA-Public Use
  Company Number: US-ELI_LILLY_AND_COMPANY-US201402008656

PATIENT
  Sex: Male

DRUGS (4)
  1. HUMALOG LISPRO [Suspect]
     Indication: DIABETES MELLITUS
     Dosage: 10 U, EACH MORNING
     Route: 065
     Dates: start: 2012
  2. HUMALOG LISPRO [Suspect]
     Dosage: 12 U, OTHER
     Route: 065
     Dates: start: 2012
  3. NOVOLOG [Concomitant]
  4. LANTUS [Concomitant]

REACTIONS (5)
  - Pneumonia [Unknown]
  - Glycosylated haemoglobin increased [Unknown]
  - Blood glucose increased [Unknown]
  - Tendon rupture [Recovering/Resolving]
  - Underdose [Unknown]
